FAERS Safety Report 9111917 (Version 1)
Quarter: 2013Q1

REPORT INFORMATION
  Report Type: Spontaneous
  Country: US (occurrence: US)
  Receive Date: 20130219
  Receipt Date: 20130219
  Transmission Date: 20140127
  Serious: No
  Sender: FDA-Public Use
  Company Number: US-BRISTOL-MYERS SQUIBB COMPANY-16667735

PATIENT
  Age: 68 Year
  Sex: Female

DRUGS (11)
  1. ORENCIA [Suspect]
     Indication: RHEUMATOID ARTHRITIS
     Dosage: LAST INF DT:9MAY12
     Route: 042
     Dates: start: 201204
  2. NORVASC [Concomitant]
  3. PRILOSEC [Concomitant]
  4. LASIX [Concomitant]
  5. VICODIN [Concomitant]
     Indication: PAIN
  6. ELAVIL [Concomitant]
  7. VASOTEC [Concomitant]
  8. COUMADIN [Concomitant]
  9. FLOVENT [Concomitant]
  10. CELEBREX [Concomitant]
  11. VOLTAREN [Concomitant]

REACTIONS (1)
  - Rash [Unknown]
